FAERS Safety Report 6838990-X (Version None)
Quarter: 2010Q3

REPORT INFORMATION
  Report Type: 
  Country: None (occurrence: None)
  Receive Date: 20100713
  Receipt Date: 20070828
  Transmission Date: 20110219
  Serious: No
  Sender: FDA-Public Use
  Company Number: US-PFIZER INC-2007046750

PATIENT
  Sex: Female
  Weight: 52.6 kg

DRUGS (6)
  1. CHANTIX [Suspect]
     Indication: SMOKING CESSATION THERAPY
     Route: 048
     Dates: start: 20070601, end: 20070614
  2. CHANTIX [Suspect]
     Indication: TOBACCO ABUSE
  3. IBANDRONATE SODIUM [Concomitant]
  4. CALCIUM [Concomitant]
  5. VITAMINS [Concomitant]
  6. ACETYLSALICYLIC ACID [Concomitant]

REACTIONS (8)
  - DEPRESSION [None]
  - GASTROINTESTINAL PAIN [None]
  - HYPERSENSITIVITY [None]
  - INFLUENZA LIKE ILLNESS [None]
  - MALAISE [None]
  - PAIN IN EXTREMITY [None]
  - PRURITUS [None]
  - RASH [None]
